FAERS Safety Report 25597015 (Version 1)
Quarter: 2025Q3

REPORT INFORMATION
  Report Type: Spontaneous
  Country: US (occurrence: US)
  Receive Date: 20250723
  Receipt Date: 20250723
  Transmission Date: 20251021
  Serious: No
  Sender: BRISTOL-MYERS SQUIBB COMPANY
  Company Number: US-BRISTOL-MYERS SQUIBB COMPANY-2025-103294

PATIENT
  Age: 56 Year
  Sex: Male

DRUGS (1)
  1. THALOMID [Suspect]
     Active Substance: THALIDOMIDE
     Indication: Product used for unknown indication
     Route: 048

REACTIONS (6)
  - Insurance issue [Unknown]
  - Therapy interrupted [Unknown]
  - Asthenia [Unknown]
  - Pain [Unknown]
  - Nausea [Unknown]
  - Anxiety [Unknown]
